FAERS Safety Report 11222502 (Version 2)
Quarter: 2015Q3

REPORT INFORMATION
  Report Type: Spontaneous
  Country: US (occurrence: US)
  Receive Date: 20150626
  Receipt Date: 20150717
  Transmission Date: 20151125
  Serious: No
  Sender: FDA-Public Use
  Company Number: US-PFIZER INC-2015210706

PATIENT
  Age: 75 Year
  Sex: Male

DRUGS (2)
  1. TYLENOL WITH CODEINE NO.3 [Suspect]
     Active Substance: ACETAMINOPHEN\CODEINE PHOSPHATE
     Indication: NEUROPATHY PERIPHERAL
     Dosage: UNK, TWICE A DAY
  2. NEURONTIN [Suspect]
     Active Substance: GABAPENTIN
     Indication: NEUROPATHY PERIPHERAL
     Dosage: UNK

REACTIONS (1)
  - Drug ineffective [Unknown]
